FAERS Safety Report 10925204 (Version 1)
Quarter: 2015Q1

REPORT INFORMATION
  Report Type: Spontaneous
  Country: US (occurrence: None)
  Receive Date: 20150316
  Receipt Date: 20150316
  Transmission Date: 20150721
  Serious: Yes (Life-Threatening, Hospitalization)
  Sender: FDA-Public Use
  Company Number: None

PATIENT
  Age: 68 Year
  Sex: Male
  Weight: 109 kg

DRUGS (8)
  1. PROSCAR [Concomitant]
     Active Substance: FINASTERIDE
  2. MULTIPLE VITAMINS-MINERALS (MULTIVITAMIN PO) [Concomitant]
  3. MULTIPLE VITAMINS-MINERALS (OCUVITE) TABS [Concomitant]
  4. FIBER [Concomitant]
     Active Substance: PSYLLIUM HUSK
  5. SIMVASTATIN (ZOCOR) [Concomitant]
  6. DILTIAZEM (CARDIZEM LA) [Concomitant]
  7. WARFARIN [Suspect]
     Active Substance: WARFARIN
     Indication: ATRIAL FIBRILLATION
     Route: 048
  8. PROSCAR [Concomitant]
     Active Substance: FINASTERIDE

REACTIONS (8)
  - Disturbance in attention [None]
  - White matter lesion [None]
  - Dysarthria [None]
  - Haemorrhagic infarction [None]
  - Feeling abnormal [None]
  - Hypertension [None]
  - Aphasia [None]
  - Haemorrhage intracranial [None]

NARRATIVE: CASE EVENT DATE: 20140708
